FAERS Safety Report 12920425 (Version 2)
Quarter: 2016Q4

REPORT INFORMATION
  Report Type: Spontaneous
  Country: JP (occurrence: JP)
  Receive Date: 20161108
  Receipt Date: 20161114
  Transmission Date: 20170207
  Serious: Yes (Other)
  Sender: FDA-Public Use
  Company Number: PHJP2016JP031774

PATIENT
  Age: 62 Year
  Sex: Male

DRUGS (1)
  1. CARBAMAZEPINE. [Suspect]
     Active Substance: CARBAMAZEPINE
     Indication: MYOCLONUS
     Dosage: UNK
     Route: 065

REACTIONS (7)
  - Sleep apnoea syndrome [Unknown]
  - Suicidal ideation [Unknown]
  - Seizure [Recovering/Resolving]
  - Suicide attempt [Unknown]
  - Anxiety [Unknown]
  - Product use issue [Unknown]
  - Aggression [Recovering/Resolving]
